FAERS Safety Report 8084328-2 (Version None)
Quarter: 2012Q1

REPORT INFORMATION
  Report Type: 
  Country: None (occurrence: None)
  Receive Date: 20120128
  Receipt Date: 20110127
  Transmission Date: 20120608
  Serious: No
  Sender: FDA-Public Use
  Company Number: US-ABBOTT-11P-163-0701625-00

PATIENT
  Sex: Male
  Weight: 72.64 kg

DRUGS (5)
  1. ALPRAZOLAM [Concomitant]
     Indication: PRODUCT USED FOR UNKNOWN INDICATION
     Route: 048
  2. LEFLUNOMIDE [Concomitant]
     Indication: PRODUCT USED FOR UNKNOWN INDICATION
     Dosage: DAILY
  3. IMPRAMINE HCL [Concomitant]
     Indication: PRODUCT USED FOR UNKNOWN INDICATION
     Dosage: AT LUNCH
     Route: 048
  4. HUMIRA [Suspect]
     Indication: RHEUMATOID ARTHRITIS
     Route: 058
     Dates: start: 20100901
  5. TRIAZAMINE/MAXIDE [Concomitant]
     Indication: HYPERTENSION
     Dosage: TAKES HALF A PILL OF 37.5/25MG MILH1
     Route: 048

REACTIONS (4)
  - MYALGIA [None]
  - LIGAMENT DISORDER [None]
  - NEUROPATHY PERIPHERAL [None]
  - INTERVERTEBRAL DISC DISPLACEMENT [None]
